FAERS Safety Report 13070642 (Version 1)
Quarter: 2016Q4

REPORT INFORMATION
  Report Type: Spontaneous
  Country: DK (occurrence: DK)
  Receive Date: 20161229
  Receipt Date: 20161229
  Transmission Date: 20170207
  Serious: Yes (Hospitalization)
  Sender: FDA-Public Use
  Company Number: DK-CONCORDIA PHARMACEUTICALS INC.-GSH201612-006476

PATIENT
  Age: 23 Year
  Sex: Female

DRUGS (8)
  1. INNOHEP [Concomitant]
     Active Substance: TINZAPARIN SODIUM
     Indication: THROMBOSIS PROPHYLAXIS
  2. ONCASPAR ?MEDAC/SIGMA-TAU? [Concomitant]
     Indication: ACUTE LYMPHOCYTIC LEUKAEMIA
     Dosage: STRENGTH: 3750 IE/5ML.
     Route: 042
     Dates: start: 20120501
  3. METHOTREXATE ^PFIZER^ [Concomitant]
     Indication: ACUTE LYMPHOCYTIC LEUKAEMIA
     Dosage: STRENGTH: 25 MG/ML.
     Route: 042
     Dates: start: 20120507, end: 20130416
  4. ONCOVIN [Concomitant]
     Active Substance: VINCRISTINE SULFATE
     Indication: ACUTE LYMPHOCYTIC LEUKAEMIA
     Dosage: STRENGTH: 1 MG/ML
     Route: 042
     Dates: start: 20120402, end: 201208
  5. PREDNISOLONE. [Suspect]
     Active Substance: PREDNISOLONE
     Indication: ACUTE LYMPHOCYTIC LEUKAEMIA
     Route: 048
     Dates: start: 201203, end: 201205
  6. DEXAMETHASONE. [Suspect]
     Active Substance: DEXAMETHASONE
     Indication: ACUTE LYMPHOCYTIC LEUKAEMIA
     Route: 048
  7. CERUBIDINE [Concomitant]
     Active Substance: DAUNORUBICIN HYDROCHLORIDE
     Indication: ACUTE LYMPHOCYTIC LEUKAEMIA
     Dosage: STRENGTH: 20 MG
     Route: 042
     Dates: start: 20120402
  8. PURINETHOL [Concomitant]
     Active Substance: MERCAPTOPURINE
     Indication: ACUTE LYMPHOCYTIC LEUKAEMIA
     Dosage: STRENGTH: 50 MG.
     Route: 048
     Dates: start: 20120501

REACTIONS (12)
  - Osteonecrosis [Unknown]
  - Hip arthroplasty [Recovered/Resolved]
  - Wheelchair user [Unknown]
  - Vertebral lesion [Unknown]
  - Walking disability [Unknown]
  - Activities of daily living impaired [Not Recovered/Not Resolved]
  - Cartilage atrophy [Unknown]
  - Arthralgia [Unknown]
  - Pain [Not Recovered/Not Resolved]
  - Joint injury [Unknown]
  - Groin pain [Unknown]
  - Spinal osteoarthritis [Unknown]

NARRATIVE: CASE EVENT DATE: 2013
